FAERS Safety Report 5684995-4 (Version None)
Quarter: 2008Q1

REPORT INFORMATION
  Report Type: 
  Country: None (occurrence: None)
  Receive Date: 20080328
  Receipt Date: 19970211
  Transmission Date: 20080703
  Serious: Yes (Death, Other)
  Sender: FDA-Public Use
  Company Number: ZA-ROCHE-76094

PATIENT
  Age: 75 Year
  Sex: Female

DRUGS (6)
  1. TICLOPIDINE HCL [Suspect]
     Indication: DRUG USE FOR UNKNOWN INDICATION
     Route: 048
     Dates: start: 19961202, end: 19961203
  2. ASPIRIN [Concomitant]
     Route: 048
     Dates: end: 19961203
  3. OMEPRAZOLE [Concomitant]
  4. ISOSORBIDE MONONITRATE [Concomitant]
     Route: 048
  5. DILTIAZEM HYDROCHLORIDE [Concomitant]
     Route: 048
  6. OXAZEPAM [Concomitant]

REACTIONS (2)
  - AORTIC ANEURYSM RUPTURE [None]
  - DEATH [None]
